FAERS Safety Report 23069115 (Version 5)
Quarter: 2024Q4

REPORT INFORMATION
  Report Type: Spontaneous
  Country: CA (occurrence: CA)
  Receive Date: 20231016
  Receipt Date: 20241108
  Transmission Date: 20250115
  Serious: Yes (Other)
  Sender: PFIZER
  Company Number: CA-PFIZER INC-202300320550

PATIENT
  Age: 73 Year
  Sex: Female

DRUGS (4)
  1. RUXIENCE [Suspect]
     Active Substance: RITUXIMAB-PVVR
     Indication: Rheumatoid arthritis
     Dosage: 500 MG, DAY 1 AND DAY 15
     Route: 042
     Dates: start: 20230509, end: 20230509
  2. RUXIENCE [Suspect]
     Active Substance: RITUXIMAB-PVVR
     Dosage: 500 MG, DAY 1 AND DAY 15
     Route: 042
     Dates: start: 20230523
  3. RUXIENCE [Suspect]
     Active Substance: RITUXIMAB-PVVR
     Dosage: 500 MG, DAY 1
     Route: 042
     Dates: start: 20231017, end: 20231017
  4. RUXIENCE [Suspect]
     Active Substance: RITUXIMAB-PVVR
     Dosage: 500 MG, DAY 1 AND DAY 15
     Route: 042
     Dates: start: 20240923

REACTIONS (6)
  - Cataract [Unknown]
  - Eye infection [Unknown]
  - Eye abrasion [Unknown]
  - Glucose tolerance impaired [Unknown]
  - Off label use [Unknown]
  - Off label use [Unknown]
